FAERS Safety Report 18257974 (Version 1)
Quarter: 2020Q3

REPORT INFORMATION
  Report Type: Spontaneous
  Country: GB (occurrence: GB)
  Receive Date: 20200911
  Receipt Date: 20200911
  Transmission Date: 20201103
  Serious: Yes (Other)
  Sender: FDA-Public Use
  Company Number: GB-MYLANLABS-2020M1077335

PATIENT
  Age: 48 Year
  Sex: Female
  Weight: 79 kg

DRUGS (1)
  1. ELLESTE DUET [Suspect]
     Active Substance: ESTRADIOL\NORETHINDRONE ACETATE
     Indication: PRODUCT USED FOR UNKNOWN INDICATION
     Dosage: 1 MILLIGRAM
     Route: 048
     Dates: start: 20191203, end: 20200305

REACTIONS (3)
  - Visual impairment [Unknown]
  - Retinal haemorrhage [Unknown]
  - Retinal vein occlusion [Recovering/Resolving]

NARRATIVE: CASE EVENT DATE: 20200227
